FAERS Safety Report 6232020-9 (Version None)
Quarter: 2009Q2

REPORT INFORMATION
  Report Type: 
  Country: None (occurrence: None)
  Receive Date: 20090612
  Receipt Date: 20090603
  Transmission Date: 20091009
  Serious: Yes (Other)
  Sender: FDA-Public Use
  Company Number: GB-WYE-G03537309

PATIENT
  Age: 43 Year
  Sex: Male

DRUGS (3)
  1. EFFEXOR XR [Suspect]
     Indication: BIPOLAR DISORDER
     Dosage: 150 MG 1X PER 1 DAY ORAL
     Route: 048
  2. LITHIUM (LITHIUM, , 0) [Suspect]
     Indication: BIPOLAR DISORDER
     Dosage: 800 MG 1X PER 1 DAY ORAL
     Route: 048
  3. OLANZAPINE [Suspect]
     Indication: BIPOLAR DISORDER
     Dosage: 10 MG 1X PER 1 DAY ORAL
     Route: 048

REACTIONS (3)
  - BLOOD PROLACTIN INCREASED [None]
  - BLOOD TESTOSTERONE DECREASED [None]
  - LOSS OF LIBIDO [None]
